FAERS Safety Report 4782202-8 (Version None)
Quarter: 2005Q3

REPORT INFORMATION
  Report Type: 
  Country: None (occurrence: None)
  Receive Date: 20050927
  Receipt Date: 20050614
  Transmission Date: 20060218
  Serious: No
  Sender: FDA-Public Use
  Company Number: US_0506118819

PATIENT
  Sex: Female
  Weight: 58 kg

DRUGS (6)
  1. STRATTERA [Suspect]
  2. SIMVASTATIN [Concomitant]
  3. TRIAMTERENE AND HYDROCHLOROTHIAZIDE [Concomitant]
  4. POTASSIUM CHLORIDE [Concomitant]
  5. ACTONEL [Concomitant]
  6. ADDERALL XR 15 [Concomitant]

REACTIONS (3)
  - DYSURIA [None]
  - HEADACHE [None]
  - SWELLING [None]
